FAERS Safety Report 6871158-X (Version None)
Quarter: 2010Q3

REPORT INFORMATION
  Report Type: 
  Country: None (occurrence: None)
  Receive Date: 20100723
  Receipt Date: 20100716
  Transmission Date: 20110219
  Serious: Yes (Other)
  Sender: FDA-Public Use
  Company Number: AU-ROCHE-711446

PATIENT
  Sex: Male
  Weight: 70 kg

DRUGS (4)
  1. AVASTIN [Suspect]
     Route: 042
     Dates: start: 20100507, end: 20100621
  2. XELODA [Suspect]
     Route: 048
     Dates: start: 20100507, end: 20100621
  3. AMLODIPINE [Concomitant]
     Indication: HYPERTENSION
     Route: 048
     Dates: start: 20100414, end: 20100607
  4. FLUOROURACIL [Concomitant]

REACTIONS (1)
  - CONGESTIVE CARDIOMYOPATHY [None]
